FAERS Safety Report 8000792-9 (Version None)
Quarter: 2011Q4

REPORT INFORMATION
  Report Type: 
  Country: None (occurrence: None)
  Receive Date: 20111222
  Receipt Date: 20111220
  Transmission Date: 20120403
  Serious: No
  Sender: FDA-Public Use
  Company Number: US-BAYER-2011-122468

PATIENT
  Sex: Female
  Weight: 91 kg

DRUGS (2)
  1. MULTI-VITAMINS [Concomitant]
  2. ALEVE (CAPLET) [Suspect]
     Indication: ARTHRITIS
     Dosage: 2 DF, BID
     Route: 048
     Dates: start: 20111212, end: 20111218

REACTIONS (1)
  - ARTHRITIS [None]
